FAERS Safety Report 4280348-4 (Version None)
Quarter: 2004Q1

REPORT INFORMATION
  Report Type: 
  Country: None (occurrence: None)
  Receive Date: 20040127
  Receipt Date: 20040115
  Transmission Date: 20041129
  Serious: Yes (Other)
  Sender: FDA-Public Use
  Company Number: 10875581

PATIENT
  Age: 36 Year
  Sex: Male

DRUGS (2)
  1. NEFAZODONE HCL TABS (NEFAZODONE HCL) [Suspect]
     Indication: ANXIETY
     Dosage: 600 MILLIGRAMS , 1 DAY ORAL
     Route: 048
     Dates: start: 19990401
  2. CIMETIDINE HCL [Suspect]
     Indication: GASTRITIS
     Dosage: 400 MILLIGRAM, 2/1 DAY ORAL
     Route: 048
     Dates: start: 20000701, end: 20000801

REACTIONS (4)
  - DRUG INTERACTION [None]
  - DRUG LEVEL INCREASED [None]
  - PHOTOPSIA [None]
  - VISUAL DISTURBANCE [None]
